FAERS Safety Report 6058941-8 (Version None)
Quarter: 2009Q1

REPORT INFORMATION
  Report Type: 
  Country: None (occurrence: None)
  Receive Date: 20090130
  Receipt Date: 20090121
  Transmission Date: 20090719
  Serious: Yes (Congenital Anomaly)
  Sender: FDA-Public Use
  Company Number: A0679384A

PATIENT
  Sex: Female

DRUGS (6)
  1. PAXIL [Suspect]
     Indication: DEPRESSION
     Dosage: 20MG UNKNOWN
  2. SYNTHROID [Concomitant]
  3. REGLAN [Concomitant]
  4. FOLATE [Concomitant]
  5. VITAMIN TAB [Concomitant]
  6. INSULIN [Concomitant]

REACTIONS (4)
  - CARDIAC FAILURE [None]
  - CONGENITAL ANOMALY [None]
  - DRUG EXPOSURE DURING PREGNANCY [None]
  - VENTRICULAR SEPTAL DEFECT [None]
